FAERS Safety Report 11079331 (Version 1)
Quarter: 2015Q2

REPORT INFORMATION
  Report Type: Spontaneous
  Country: JP (occurrence: JP)
  Receive Date: 20150430
  Receipt Date: 20150430
  Transmission Date: 20150821
  Serious: Yes (Hospitalization)
  Sender: FDA-Public Use
  Company Number: JP-JNJFOC-20150419629

PATIENT
  Sex: Female
  Weight: 62 kg

DRUGS (3)
  1. DUROTEP MT PATCH [Suspect]
     Active Substance: FENTANYL
     Indication: PAIN
     Route: 062
     Dates: start: 20140825
  2. DUROTEP MT PATCH [Suspect]
     Active Substance: FENTANYL
     Indication: PAIN
     Route: 062
     Dates: start: 201412
  3. BUSCOPAN [Concomitant]
     Active Substance: BUTYLSCOPOLAMINE BROMIDE
     Indication: DIARRHOEA
     Route: 065

REACTIONS (8)
  - Product quality issue [Unknown]
  - Wrong technique in drug usage process [Unknown]
  - Hospitalisation [Recovered/Resolved]
  - Visual impairment [Unknown]
  - Weight decreased [Unknown]
  - Pain in extremity [Unknown]
  - Decreased appetite [Unknown]
  - Diarrhoea [Unknown]
